FAERS Safety Report 5978299-X (Version None)
Quarter: 2008Q4

REPORT INFORMATION
  Report Type: 
  Country: None (occurrence: None)
  Receive Date: 20081204
  Receipt Date: 20081127
  Transmission Date: 20090506
  Serious: Yes (Hospitalization)
  Sender: FDA-Public Use
  Company Number: SE-ASTRAZENECA-2007SE00241

PATIENT
  Age: 25614 Day
  Sex: Female

DRUGS (11)
  1. ARIMIDEX [Suspect]
     Indication: BREAST CANCER
     Route: 048
     Dates: start: 20060713
  2. SELOKEN [Concomitant]
     Indication: MYOCARDIAL INFARCTION
  3. HERMOLEPSIN [Concomitant]
     Indication: PAIN IN JAW
  4. TROMBYL [Concomitant]
     Indication: MYOCARDIAL INFARCTION
  5. SIMVASTATIN [Concomitant]
     Indication: HYPERLIPIDAEMIA
  6. LYRICA [Concomitant]
     Indication: PAIN
  7. OMEPRAZOLE [Concomitant]
     Indication: DYSPEPSIA
  8. LACTULOSE [Concomitant]
     Indication: CONSTIPATION
  9. OXYCONTIN [Concomitant]
     Indication: PAIN
  10. OXYNORM [Concomitant]
     Indication: PAIN
  11. CEFAMOX [Concomitant]

REACTIONS (1)
  - VIRAL INFECTION [None]
